FAERS Safety Report 23083806 (Version 2)
Quarter: 2023Q4

REPORT INFORMATION
  Report Type: Spontaneous
  Country: ES (occurrence: ES)
  Receive Date: 20231019
  Receipt Date: 20231031
  Transmission Date: 20240109
  Serious: Yes (Hospitalization)
  Sender: FDA-Public Use
  Company Number: ES-TEVA-2023-ES-2936061

PATIENT
  Age: 47 Year
  Sex: Female

DRUGS (4)
  1. CARBOPLATIN [Suspect]
     Active Substance: CARBOPLATIN
     Indication: Ovarian cancer stage I
     Route: 065
     Dates: start: 202202
  2. CARBOPLATIN [Suspect]
     Active Substance: CARBOPLATIN
     Indication: Endometrial cancer stage I
  3. ENOXAPARIN [Concomitant]
     Active Substance: ENOXAPARIN
     Indication: Antithrombin III deficiency
     Dosage: INITIAL DOSE NOT STATED
     Route: 065
  4. ENOXAPARIN [Concomitant]
     Active Substance: ENOXAPARIN
     Dosage: 2 MG/KG DAILY;
     Route: 065

REACTIONS (1)
  - Pulmonary embolism [Recovered/Resolved]
